FAERS Safety Report 7790680-5 (Version None)
Quarter: 2011Q3

REPORT INFORMATION
  Report Type: 
  Country: None (occurrence: None)
  Receive Date: 20110930
  Receipt Date: 20110902
  Transmission Date: 20111222
  Serious: Yes (Other)
  Sender: FDA-Public Use
  Company Number: BR-US-EMD SERONO, INC.-7081858

PATIENT
  Sex: Female

DRUGS (7)
  1. CITOZOL [Concomitant]
  2. LOSARTAN POTASSIUM [Concomitant]
  3. OMEPRAZOLE [Concomitant]
  4. REBIF [Suspect]
     Indication: SECONDARY PROGRESSIVE MULTIPLE SCLEROSIS
     Dates: start: 20060216
  5. ARTROLIV [Concomitant]
  6. FUROSEMIDE [Concomitant]
  7. INDAPEN [Concomitant]

REACTIONS (5)
  - DIABETES MELLITUS [None]
  - CYANOSIS [None]
  - OEDEMA PERIPHERAL [None]
  - BLOOD CHOLESTEROL INCREASED [None]
  - ASTHENIA [None]
